FAERS Safety Report 13600706 (Version 2)
Quarter: 2017Q2

REPORT INFORMATION
  Report Type: Spontaneous
  Country: RO (occurrence: RO)
  Receive Date: 20170601
  Receipt Date: 20170612
  Transmission Date: 20170830
  Serious: Yes (Hospitalization)
  Sender: FDA-Public Use
  Company Number: RO-AUROBINDO-AUR-APL-2017-35015

PATIENT
  Age: 60 Year
  Sex: Female

DRUGS (4)
  1. OMBITASVIR [Suspect]
     Active Substance: OMBITASVIR
     Indication: HEPATITIS C VIRUS TEST POSITIVE
     Route: 065
  2. DASABUVIR [Suspect]
     Active Substance: DASABUVIR
     Indication: HEPATITIS C VIRUS TEST POSITIVE
     Route: 065
  3. RIBAVIRIN. [Suspect]
     Active Substance: RIBAVIRIN
     Indication: HEPATITIS C VIRUS TEST POSITIVE
     Dosage: UNK
     Route: 065
     Dates: start: 20160210
  4. RITONAVIR. [Suspect]
     Active Substance: RITONAVIR
     Indication: HEPATITIS C VIRUS TEST POSITIVE
     Route: 065

REACTIONS (10)
  - Dizziness [Recovered/Resolved]
  - Disorientation [Recovered/Resolved]
  - Gingival bleeding [Recovered/Resolved]
  - Disorganised speech [Recovered/Resolved]
  - Jaundice [Recovered/Resolved]
  - Asthenia [Recovered/Resolved]
  - Fatigue [Recovered/Resolved]
  - Asterixis [Recovered/Resolved]
  - Ascites [Recovered/Resolved]
  - Somnolence [Recovered/Resolved]
